FAERS Safety Report 17275453 (Version 1)
Quarter: 2020Q1

REPORT INFORMATION
  Report Type: Spontaneous
  Country: GB (occurrence: GB)
  Receive Date: 20200116
  Receipt Date: 20200116
  Transmission Date: 20200409
  Serious: Yes (Other)
  Sender: FDA-Public Use
  Company Number: GB-TEVA-2020-GB-1168346

PATIENT
  Age: 76 Year
  Sex: Female
  Weight: 83 kg

DRUGS (10)
  1. RIVAROXABAN [Concomitant]
     Active Substance: RIVAROXABAN
     Dosage: WITH FOOD.
     Dates: start: 20190603
  2. CLARITHROMYCIN. [Suspect]
     Active Substance: CLARITHROMYCIN
     Dosage: 500 MILLIGRAM
     Route: 048
     Dates: start: 20140924
  3. SYMBICORT [Concomitant]
     Active Substance: BUDESONIDE\FORMOTEROL FUMARATE DIHYDRATE
     Dosage: QUICK AND DEEP.
     Route: 055
     Dates: start: 20190724
  4. HYDROXOCOBALAMIN [Concomitant]
     Active Substance: HYDROXOCOBALAMIN
     Dates: start: 20180726
  5. LEVOTHYROXINE. [Concomitant]
     Active Substance: LEVOTHYROXINE
     Dates: start: 20190724
  6. BISOPROLOL [Concomitant]
     Active Substance: BISOPROLOL
     Dosage: 2 DOSAGEFORM
     Dates: start: 20190724
  7. SALBUTAMOL [Concomitant]
     Active Substance: ALBUTEROL
     Dosage: PUFFS. USE VIA SPACER.
     Route: 055
     Dates: start: 20191216
  8. BRALTUS [Concomitant]
     Active Substance: TIOTROPIUM BROMIDE
     Dosage: PUFFS (ONE CAPSULE) AT NIGHT.
     Route: 055
     Dates: start: 20190603
  9. FULTIUM-D3 [Concomitant]
     Active Substance: CHOLECALCIFEROL
     Dates: start: 20180822
  10. DOXYCYCLINE. [Concomitant]
     Active Substance: DOXYCYCLINE
     Dates: start: 20191216

REACTIONS (2)
  - Hypersensitivity [Unknown]
  - Malaise [Recovered/Resolved]

NARRATIVE: CASE EVENT DATE: 20140929
